FAERS Safety Report 9199963 (Version 1)
Quarter: 2013Q1

REPORT INFORMATION
  Report Type: Report from Study
  Country: ZA (occurrence: ZA)
  Receive Date: 20130329
  Receipt Date: 20130329
  Transmission Date: 20140127
  Serious: Yes (Death, Hospitalization)
  Sender: FDA-Public Use
  Company Number: ZA-ROCHE-1207026

PATIENT
  Age: 64 Year
  Sex: Male

DRUGS (4)
  1. MIRCERA [Suspect]
     Indication: PRODUCT USED FOR UNKNOWN INDICATION
     Route: 058
     Dates: start: 201003
  2. MIRCERA [Suspect]
     Route: 058
     Dates: start: 201110
  3. MIRCERA [Suspect]
     Route: 058
     Dates: start: 201202, end: 201302
  4. VENOFER [Concomitant]
     Route: 065

REACTIONS (2)
  - Nausea [Unknown]
  - Myocardial infarction [Fatal]
